FAERS Safety Report 8480823 (Version 3)
Quarter: 2014Q2

REPORT INFORMATION
  Report Type: Report from Study
  Country: US (occurrence: US)
  Receive Date: 20120328
  Receipt Date: 20140425
  Transmission Date: 20141212
  Serious: Yes (Hospitalization)
  Sender: FDA-Public Use
  Company Number: US-ALEXION-A201200546

PATIENT
  Age: 59 Year
  Sex: Female
  Weight: 69.8 kg

DRUGS (9)
  1. SOLIRIS 300MG [Suspect]
     Indication: PAROXYSMAL NOCTURNAL HAEMOGLOBINURIA
     Dosage: 600 MG, QW
     Route: 042
     Dates: start: 20100929, end: 2010
  2. SOLIRIS 300MG [Suspect]
     Dosage: 600 UNK, UNK
     Route: 042
     Dates: start: 20101014, end: 20101021
  3. SOLIRIS 300MG [Suspect]
     Dosage: 900 MG, Q2W
     Route: 042
     Dates: start: 20101020
  4. HEMOPHILUS INFLUENZA VACCINE [Concomitant]
     Dosage: UNK
     Dates: start: 20120120, end: 20120120
  5. PNEUMOCOCCAL VACCINE [Concomitant]
     Dosage: UNK
     Dates: start: 20111222, end: 20111222
  6. CYCLOSPORINE [Concomitant]
     Dosage: 200 MG, QD
  7. MAGNESIUM OXIDE [Concomitant]
     Dosage: 400 MG, QD
  8. FAMVIR [Concomitant]
     Indication: PROPHYLAXIS
     Dosage: 250 MG, BID
     Route: 048
  9. FOLIC ACID [Concomitant]
     Dosage: UNK

REACTIONS (3)
  - Transfusion reaction [Recovered/Resolved]
  - Non-cardiogenic pulmonary oedema [Recovered/Resolved]
  - Platelet count decreased [Recovered/Resolved]
